FAERS Safety Report 24757481 (Version 1)
Quarter: 2024Q4

REPORT INFORMATION
  Report Type: Spontaneous
  Country: US (occurrence: US)
  Receive Date: 20241220
  Receipt Date: 20241220
  Transmission Date: 20250115
  Serious: Yes (Hospitalization, Other)
  Sender: Haleon PLC
  Company Number: US-HALEON-2216173

PATIENT
  Age: 30 Year
  Sex: Female
  Weight: 135 kg

DRUGS (1)
  1. ACETAMINOPHEN [Suspect]
     Active Substance: ACETAMINOPHEN
     Indication: Product used for unknown indication
     Route: 048

REACTIONS (6)
  - Suicide attempt [Unknown]
  - Hepatotoxicity [Unknown]
  - Overdose [Unknown]
  - Unresponsive to stimuli [Unknown]
  - Mental status changes [Unknown]
  - Areflexia [Unknown]
